FAERS Safety Report 8778011 (Version 1)
Quarter: 2012Q4

REPORT INFORMATION
  Report Type: 
  Country: US (occurrence: US)
  Receive Date: 20120911
  Receipt Date: 20120911
  Transmission Date: 20130627
  Serious: No
  Sender: FDA-Public Use
  Company Number: US-PFIZER INC-2012221509

PATIENT
  Age: 72 Year
  Sex: Male
  Weight: 90.7 kg

DRUGS (5)
  1. NEURONTIN [Suspect]
     Indication: NEUROPATHY PERIPHERAL
     Dosage: 100 mg, daily
     Dates: start: 201207
  2. NEURONTIN [Suspect]
     Dosage: 100 mg, 3x/day
     Dates: start: 2012
  3. NEURONTIN [Suspect]
     Dosage: 100 mg daily
     Dates: start: 20120904
  4. CYMBALTA [Concomitant]
     Dosage: 30 mg, daily
  5. HYZAAR [Concomitant]
     Indication: BLOOD PRESSURE ABNORMAL
     Dosage: 100 mg daily

REACTIONS (7)
  - Drug ineffective [Unknown]
  - Hyperhidrosis [Unknown]
  - Feeling abnormal [Unknown]
  - Dizziness [Recovering/Resolving]
  - Headache [Recovering/Resolving]
  - Impaired driving ability [Recovered/Resolved]
  - Intentional drug misuse [Unknown]
